FAERS Safety Report 7688559-2 (Version None)
Quarter: 2011Q3

REPORT INFORMATION
  Report Type: 
  Country: None (occurrence: None)
  Receive Date: 20110817
  Receipt Date: 20110817
  Transmission Date: 20111222
  Serious: Yes (Hospitalization)
  Sender: FDA-Public Use
  Company Number: None

PATIENT
  Age: 8 Year
  Sex: Male
  Weight: 34.7 kg

DRUGS (2)
  1. ACYCLOVIR [Suspect]
     Indication: ENCEPHALITIS HERPES
     Dosage: 760MG
     Route: 042
     Dates: start: 20110726, end: 20110727
  2. ACYCLOVIR [Suspect]
     Indication: VIITH NERVE PARALYSIS
     Dosage: 760MG
     Route: 042
     Dates: start: 20110726, end: 20110727

REACTIONS (1)
  - NO ADVERSE EVENT [None]
